FAERS Safety Report 6695709-3 (Version None)
Quarter: 2010Q2

REPORT INFORMATION
  Report Type: 
  Country: None (occurrence: None)
  Receive Date: 20100426
  Receipt Date: 20100415
  Transmission Date: 20101027
  Serious: Yes (Other)
  Sender: FDA-Public Use
  Company Number: US-ASTRAZENECA-2009UW15617

PATIENT
  Age: 41 Year
  Sex: Female
  Weight: 106.1 kg

DRUGS (13)
  1. SEROQUEL [Suspect]
     Indication: SLEEP DISORDER
     Route: 048
     Dates: start: 19980101, end: 20060101
  2. SEROQUEL [Suspect]
     Dosage: 200MG-400MG DAILY
     Route: 048
     Dates: start: 20010724
  3. CYMBALTA [Concomitant]
     Indication: BIPOLAR DISORDER
     Route: 048
     Dates: start: 19970101
  4. CYMBALTA [Concomitant]
     Indication: DEPRESSION
     Route: 048
     Dates: start: 19970101
  5. GEODON [Concomitant]
     Indication: BIPOLAR DISORDER
     Route: 048
     Dates: start: 19970101
  6. GEODON [Concomitant]
     Indication: DEPRESSION
     Route: 048
     Dates: start: 19970101
  7. CARISOPRODOL [Concomitant]
     Dates: start: 20010628
  8. BUSPAR [Concomitant]
     Dates: start: 20010604
  9. CLONAZEPAM [Concomitant]
     Dosage: 1 IN THE MORNING, 2 AT NIGHT
     Dates: start: 20080501
  10. ACTOS [Concomitant]
     Indication: TYPE 2 DIABETES MELLITUS
     Dates: start: 20030101
  11. ACTOS [Concomitant]
     Indication: HYPERGLYCAEMIA
     Dates: start: 20030101
  12. SIMVASTATIN [Concomitant]
     Indication: BLOOD CHOLESTEROL INCREASED
     Dates: start: 20000101
  13. SIMVASTATIN [Concomitant]
     Indication: HYPERLIPIDAEMIA
     Dates: start: 20000101

REACTIONS (6)
  - BLOOD CHOLESTEROL INCREASED [None]
  - CARDIAC DISORDER [None]
  - HYPERLIPIDAEMIA [None]
  - JOINT INJURY [None]
  - TYPE 2 DIABETES MELLITUS [None]
  - WEIGHT INCREASED [None]
